FAERS Safety Report 8788244 (Version 1)
Quarter: 2012Q4

REPORT INFORMATION
  Report Type: Report from Study
  Country: US (occurrence: US)
  Receive Date: 20120914
  Receipt Date: 20120914
  Transmission Date: 20130627
  Serious: No
  Sender: FDA-Public Use
  Company Number: US-VERTEX PHARMACEUTICAL INC.-AE-2012-005248

PATIENT
  Age: 59 None
  Sex: Male

DRUGS (9)
  1. INCIVEK [Suspect]
     Indication: HEPATITIS C
     Route: 048
     Dates: start: 20120323
  2. RIBAVIRIN [Concomitant]
     Indication: HEPATITIS C
     Route: 048
     Dates: start: 20120323
  3. PEGASYS [Concomitant]
     Indication: HEPATITIS C
     Route: 058
     Dates: start: 20120323
  4. FIBER CAP [Concomitant]
  5. ASA [Concomitant]
  6. FISH OIL [Concomitant]
  7. FOLBIC [Concomitant]
  8. METFORMIN [Concomitant]
  9. ZETIA [Concomitant]

REACTIONS (5)
  - Depression [Unknown]
  - Fatigue [Unknown]
  - Anaemia [Unknown]
  - Rash [Unknown]
  - Pruritus [Unknown]
